FAERS Safety Report 18392120 (Version 2)
Quarter: 2021Q4

REPORT INFORMATION
  Report Type: Report from Study
  Country: JP (occurrence: JP)
  Receive Date: 20201016
  Receipt Date: 20211026
  Transmission Date: 20220303
  Serious: Yes (Hospitalization)
  Sender: FDA-Public Use
  Company Number: JP-JNJFOC-20201025476

PATIENT
  Age: 56 Year
  Sex: Female

DRUGS (26)
  1. OPSUMIT [Suspect]
     Active Substance: MACITENTAN
     Indication: Skin ulcer
     Dosage: IN THE MORNING
     Route: 048
     Dates: start: 20180719
  2. UPTRAVI [Suspect]
     Active Substance: SELEXIPAG
     Indication: Systemic scleroderma
     Dosage: AFTER BREAKFAST AND DINNER
     Route: 048
     Dates: start: 20180719
  3. TRAMADOL HYDROCHLORIDE AND ACETAMINOPHEN [Concomitant]
     Active Substance: ACETAMINOPHEN\TRAMADOL HYDROCHLORIDE
     Indication: Systemic scleroderma
     Route: 048
     Dates: start: 20180719
  4. PROGRAF [Concomitant]
     Active Substance: TACROLIMUS
     Indication: Systemic scleroderma
     Dosage: AFTER DINNER
     Route: 048
     Dates: start: 20180719
  5. SENNOSIDES [Concomitant]
     Active Substance: SENNOSIDES
     Indication: Systemic scleroderma
     Dosage: AFTER DINNER
     Route: 048
     Dates: start: 20180719
  6. LYRICA [Concomitant]
     Active Substance: PREGABALIN
     Indication: Systemic scleroderma
     Dosage: AFTER BREAKFAST AND DINNER
     Route: 048
     Dates: start: 20180719
  7. VASOLAN [Concomitant]
     Indication: Systemic scleroderma
     Dosage: AFTER EACH MEAL
     Route: 048
     Dates: start: 20180719
  8. URSO [Concomitant]
     Active Substance: URSODIOL
     Indication: Systemic scleroderma
     Dosage: AFTER EACH MEAL
     Route: 048
     Dates: start: 20180719
  9. MAGNESIUM OXIDE [Concomitant]
     Active Substance: MAGNESIUM OXIDE
     Indication: Systemic scleroderma
     Dosage: AFTER EACH MEAL
     Route: 048
     Dates: start: 20180719
  10. LIPITOR [Concomitant]
     Active Substance: ATORVASTATIN CALCIUM
     Indication: Lipid metabolism disorder
     Dosage: AFTER BREAKFAST
     Route: 048
     Dates: start: 20180719
  11. LASIX [Concomitant]
     Active Substance: FUROSEMIDE
     Indication: Systemic scleroderma
     Dosage: AFTER BREAKFAST
     Route: 048
     Dates: start: 20180719
  12. CYMBALTA [Concomitant]
     Active Substance: DULOXETINE HYDROCHLORIDE
     Indication: Systemic scleroderma
     Dosage: AFTER BREAKFAST
     Route: 048
     Dates: start: 20180719
  13. FLUNITRAZEPAM [Concomitant]
     Active Substance: FLUNITRAZEPAM
     Indication: Lipid metabolism disorder
     Dosage: AT BEDTIME
     Route: 048
     Dates: start: 20180719, end: 20180815
  14. ERYTHROCIN W [Concomitant]
     Indication: Systemic scleroderma
     Dosage: AFTER BREAKFAST AND DINNER
     Route: 048
     Dates: start: 20180719
  15. ACHILLEA MILLEFOLIUM\RUBIA TINCTURE\SENNA FRUIT EXTRACT\SENNA LEAF\TAR [Concomitant]
     Active Substance: ACHILLEA MILLEFOLIUM\RUBIA TINCTURE\SENNA FRUIT EXTRACT\SENNA LEAF\TARAXACUM OFFICINALE
     Indication: Systemic scleroderma
     Dosage: AT BEDTIME
     Route: 048
     Dates: start: 20180719
  16. TRAMADOL HYDROCHLORIDE [Concomitant]
     Active Substance: TRAMADOL HYDROCHLORIDE
     Indication: Systemic scleroderma
     Dosage: AFTER BREAKFAST
     Route: 048
     Dates: start: 20180719
  17. PREDONINE [Concomitant]
     Active Substance: PREDNISOLONE
     Indication: Systemic scleroderma
     Route: 048
     Dates: start: 20180719
  18. PREDNISOLONE [Concomitant]
     Active Substance: PREDNISOLONE
     Indication: Systemic scleroderma
     Dosage: AFTER BREAKFAST
     Route: 048
     Dates: start: 20180719
  19. ELDECALCITOL [Concomitant]
     Active Substance: ELDECALCITOL
     Indication: Systemic scleroderma
     Dosage: AFTER BREAKFAST
     Route: 048
     Dates: start: 20180719
  20. NEXIUM [Concomitant]
     Active Substance: ESOMEPRAZOLE MAGNESIUM
     Indication: Systemic scleroderma
     Dosage: AFTER BREAKFAST
     Route: 048
     Dates: start: 20180719
  21. CAMPHOR\CAPSICUM\METHYL SALICYLATE [Concomitant]
     Active Substance: CAMPHOR\CAPSICUM\METHYL SALICYLATE
     Indication: Systemic scleroderma
     Route: 062
     Dates: start: 20180719
  22. RECALBON [Concomitant]
     Indication: Systemic scleroderma
     Dosage: UPON AWAKENING
     Route: 048
     Dates: start: 20180719
  23. GLYCOSAMINOGLYCANS [Concomitant]
     Active Substance: GLYCOSAMINOGLYCANS
     Indication: Systemic scleroderma
     Dosage: DOSE UNKNOWN,UPPER LIMBS
     Route: 061
     Dates: start: 20180719
  24. POVIDONE-IODINE [Concomitant]
     Active Substance: POVIDONE-IODINE
     Indication: Systemic scleroderma
     Dosage: DOSE UNKNOWN
     Route: 065
     Dates: start: 20180719
  25. ADCIRCA [Concomitant]
     Active Substance: TADALAFIL
     Indication: Systemic scleroderma
     Dosage: AFTER BREAKFAST
     Route: 048
     Dates: start: 20180719
  26. PROSTANDIN [ALPROSTADIL ALFADEX] [Concomitant]
     Indication: Systemic scleroderma
     Route: 061
     Dates: start: 20180719

REACTIONS (1)
  - Interstitial lung disease [Unknown]
